FAERS Safety Report 8279003-5 (Version None)
Quarter: 2012Q2

REPORT INFORMATION
  Report Type: 
  Country: None (occurrence: None)
  Receive Date: 20120412
  Receipt Date: 20110609
  Transmission Date: 20120825
  Serious: No
  Sender: FDA-Public Use
  Company Number: US-ASTRAZENECA-2010SE25967

PATIENT
  Age: 56 Year
  Sex: Female
  Weight: 63.5 kg

DRUGS (3)
  1. NEXIUM [Suspect]
     Indication: GASTROOESOPHAGEAL REFLUX DISEASE
     Route: 048
     Dates: start: 20010101
  2. ZESTRIL [Suspect]
     Indication: HYPERTENSION
     Route: 048
     Dates: start: 19950101
  3. NEXIUM [Suspect]
     Indication: NERVOUSNESS
     Route: 048
     Dates: start: 20010101

REACTIONS (12)
  - FIBROMYALGIA [None]
  - FUNGAL INFECTION [None]
  - MALAISE [None]
  - BACK INJURY [None]
  - BEDRIDDEN [None]
  - RESTLESS LEGS SYNDROME [None]
  - WEIGHT DECREASED [None]
  - CHEST PAIN [None]
  - NAUSEA [None]
  - ABDOMINAL PAIN UPPER [None]
  - DRUG DOSE OMISSION [None]
  - THROAT IRRITATION [None]
